FAERS Safety Report 7207243-2 (Version None)
Quarter: 2011Q1

REPORT INFORMATION
  Report Type: 
  Country: None (occurrence: None)
  Receive Date: 20110103
  Receipt Date: 20101221
  Transmission Date: 20110831
  Serious: Yes (Other)
  Sender: FDA-Public Use
  Company Number: US-PFIZER INC-2010177631

PATIENT
  Sex: Female
  Weight: 82 kg

DRUGS (6)
  1. LYRICA [Suspect]
     Dosage: UNK
  2. PRILOSEC [Concomitant]
     Indication: GASTROINTESTINAL DISORDER
  3. VICODIN [Concomitant]
     Indication: PAIN
  4. TOPAMAX [Suspect]
     Dosage: UNK
  5. KLONOPIN [Concomitant]
     Indication: SLEEP DISORDER
     Dosage: 1/4 OF A PILL
  6. EFFEXOR [Concomitant]
     Indication: DEPRESSION

REACTIONS (12)
  - DYSARTHRIA [None]
  - STAPHYLOCOCCAL INFECTION [None]
  - VISUAL ACUITY REDUCED [None]
  - PNEUMONIA [None]
  - HYPERSENSITIVITY [None]
  - WEIGHT DECREASED [None]
  - BALANCE DISORDER [None]
  - SUPERINFECTION [None]
  - ASTHMA [None]
  - GASTROINTESTINAL HAEMORRHAGE [None]
  - FALL [None]
  - VARICELLA [None]
